FAERS Safety Report 20913673 (Version 2)
Quarter: 2022Q2

REPORT INFORMATION
  Report Type: Spontaneous
  Country: JP (occurrence: JP)
  Receive Date: 20220604
  Receipt Date: 20220623
  Transmission Date: 20220720
  Serious: Yes (Hospitalization, Other)
  Sender: FDA-Public Use
  Company Number: JP-AMGEN-JPNSP2022094195

PATIENT

DRUGS (1)
  1. BLINCYTO [Suspect]
     Active Substance: BLINATUMOMAB
     Indication: Acute lymphocytic leukaemia recurrent
     Dosage: UNK
     Route: 041

REACTIONS (1)
  - Acute lymphocytic leukaemia recurrent [Unknown]
